FAERS Safety Report 8506017-X (Version None)
Quarter: 2012Q3

REPORT INFORMATION
  Report Type: 
  Country: None (occurrence: None)
  Receive Date: 20120712
  Receipt Date: 20091213
  Transmission Date: 20120928
  Serious: Yes (Other)
  Sender: FDA-Public Use
  Company Number: CO-PFIZER INC-2012165297

PATIENT
  Age: 42 Year
  Sex: Male

DRUGS (5)
  1. VERAPAMIL [Concomitant]
     Dosage: 851 MG, 2X/DAY
  2. LIPITOR [Suspect]
     Dosage: 10 MG, 1X/DAY
  3. OLMESARTAN MEDOXOMIL AND HYDROCHLOROTHIZIDE [Suspect]
     Dosage: 20/12.5 MG, 1X/DAY
  4. OLMESARTAN MEDOXOMIL [Suspect]
     Dosage: 20 MG, 1X/DAY
  5. METOPROLOL [Concomitant]
     Dosage: 50 MG, 1X/DAY

REACTIONS (2)
  - RENAL FAILURE CHRONIC [None]
  - HYPERTENSIVE EMERGENCY [None]
